FAERS Safety Report 4403879-2 (Version None)
Quarter: 2004Q3

REPORT INFORMATION
  Report Type: 
  Country: None (occurrence: None)
  Receive Date: 20040719
  Receipt Date: 20040701
  Transmission Date: 20050211
  Serious: Yes (Hospitalization)
  Sender: FDA-Public Use
  Company Number: 2004IC000337

PATIENT
  Age: 54 Year
  Sex: Male

DRUGS (6)
  1. FLUOROURACIL [Suspect]
     Indication: HEPATIC NEOPLASM MALIGNANT
     Dosage: 500 MG; INTRA-ARTICULAR
     Route: 014
     Dates: start: 20031127, end: 20040609
  2. ISOVORIN [Suspect]
     Indication: HEPATIC NEOPLASM MALIGNANT
     Dosage: 20 MG; INTRAARTICULAR
     Route: 014
     Dates: start: 20031127, end: 20040609
  3. CISPLATIN [Suspect]
     Indication: HEPATIC NEOPLASM MALIGNANT
     Dosage: 10 MG; INTRAVENOUS
     Route: 042
     Dates: start: 20031127, end: 20040608
  4. ZANTAC [Concomitant]
  5. URSO [Concomitant]
  6. GLAKAY [Concomitant]

REACTIONS (2)
  - BACK PAIN [None]
  - IMPLANT SITE INFECTION [None]
